FAERS Safety Report 11245349 (Version 1)
Quarter: 2015Q3

REPORT INFORMATION
  Report Type: Spontaneous
  Country: None (occurrence: DE)
  Receive Date: 20150707
  Receipt Date: 20150707
  Transmission Date: 20151125
  Serious: Yes (Hospitalization, Other)
  Sender: FDA-Public Use
  Company Number: DE-MERCK KGAA-1040390

PATIENT

DRUGS (1)
  1. NOVOTHYROX [Suspect]
     Active Substance: LEVOTHYROXINE SODIUM

REACTIONS (9)
  - Gallbladder disorder [None]
  - Paralysis [None]
  - Pain in extremity [None]
  - Drug interaction [None]
  - Muscle spasms [None]
  - Lower limb fracture [None]
  - Myalgia [None]
  - Muscular weakness [None]
  - Alopecia [None]
